FAERS Safety Report 16584886 (Version 1)
Quarter: 2019Q3

REPORT INFORMATION
  Report Type: Spontaneous
  Country: FI (occurrence: FI)
  Receive Date: 20190717
  Receipt Date: 20190717
  Transmission Date: 20191004
  Serious: Yes (Hospitalization, Other)
  Sender: FDA-Public Use
  Company Number: FI-AMGEN-FINSP2019112588

PATIENT
  Sex: Male

DRUGS (2)
  1. ENTOCORT ENEMA [Concomitant]
     Indication: COLITIS
     Dosage: UNK
     Dates: start: 20190618
  2. AMGEVITA [Suspect]
     Active Substance: ADALIMUMAB
     Indication: COLITIS
     Dosage: 40 MILLIGRAM, Q2WK
     Route: 065
     Dates: start: 20190201

REACTIONS (3)
  - Congestive cardiomyopathy [Unknown]
  - Septic embolus [Unknown]
  - Therapeutic product effect incomplete [Unknown]

NARRATIVE: CASE EVENT DATE: 2019
